FAERS Safety Report 15934861 (Version 1)
Quarter: 2019Q1

REPORT INFORMATION
  Report Type: Report from Study
  Country: US (occurrence: US)
  Receive Date: 20190207
  Receipt Date: 20190207
  Transmission Date: 20190417
  Serious: Yes (Other)
  Sender: FDA-Public Use
  Company Number: US-BAUSCH-BL-2019-003182

PATIENT
  Age: 39 Year
  Sex: Male

DRUGS (1)
  1. SILIQ [Suspect]
     Active Substance: BRODALUMAB
     Indication: PRODUCT USED FOR UNKNOWN INDICATION
     Dosage: AT WEEKS 0, 1 AND 2 FOLLOWED BY 210 MG EVERY 2 WEEKS,?TOOK SILIQ ONLY ONCE, AROUND 18/DEC/2018
     Route: 058
     Dates: start: 201812, end: 201812

REACTIONS (3)
  - Joint swelling [Recovering/Resolving]
  - Hemiplegia [Recovering/Resolving]
  - Peripheral swelling [Recovering/Resolving]

NARRATIVE: CASE EVENT DATE: 201812
